FAERS Safety Report 9925200 (Version 2)
Quarter: 2014Q1

REPORT INFORMATION
  Report Type: Report from Study
  Country: US (occurrence: US)
  Receive Date: 20140226
  Receipt Date: 20140226
  Transmission Date: 20141002
  Serious: Yes (Hospitalization)
  Sender: FDA-Public Use
  Company Number: US-ABBVIE-14P-163-1201766-00

PATIENT
  Sex: Female

DRUGS (2)
  1. HUMIRA [Suspect]
     Indication: CROHN^S DISEASE
  2. HUMIRA [Suspect]
     Indication: PSORIATIC ARTHROPATHY

REACTIONS (7)
  - Intestinal stenosis [Recovered/Resolved]
  - Intestinal ulcer [Recovered/Resolved]
  - Surgery [Unknown]
  - Infection [Unknown]
  - Drug ineffective [Not Recovered/Not Resolved]
  - Cellulitis [Recovered/Resolved]
  - Herpes zoster [Unknown]
